FAERS Safety Report 5034587-5 (Version None)
Quarter: 2006Q2

REPORT INFORMATION
  Report Type: 
  Country: None (occurrence: None)
  Receive Date: 20060621
  Receipt Date: 20060602
  Transmission Date: 20061013
  Serious: Yes (Hospitalization)
  Sender: FDA-Public Use
  Company Number: 02100-EUR-06-0032

PATIENT
  Age: 64 Year
  Sex: Female

DRUGS (5)
  1. CILOSTAZOL [Suspect]
     Dosage: 200 MG, ORAL
     Route: 048
     Dates: start: 20060105, end: 20060324
  2. PIOGLITAZONE HCL [Suspect]
     Indication: DIABETES MELLITUS
     Dosage: 30 MG, ORAL
     Route: 048
     Dates: start: 20060324
  3. FUROSEMIDE [Concomitant]
  4. DONEPEZIL HCL [Concomitant]
  5. METFORMIN [Concomitant]

REACTIONS (2)
  - LEFT VENTRICULAR FAILURE [None]
  - PNEUMONIA [None]
